FAERS Safety Report 6262976-X (Version None)
Quarter: 2009Q3

REPORT INFORMATION
  Report Type: 
  Country: None (occurrence: None)
  Receive Date: 20090710
  Receipt Date: 20071127
  Transmission Date: 20100115
  Serious: Yes (Other)
  Sender: FDA-Public Use
  Company Number: US-ASTRAZENECA-2007UW12521

PATIENT
  Age: 46 Year
  Sex: Male
  Weight: 67.1 kg

DRUGS (20)
  1. SEROQUEL [Suspect]
     Indication: SLEEP DISORDER
     Dosage: 50 TO 600 MG
     Route: 048
     Dates: start: 20010724
  2. SEROQUEL [Suspect]
     Route: 048
     Dates: start: 20030301, end: 20040101
  3. ACIPHEX [Concomitant]
     Indication: GASTROINTESTINAL DISORDER
     Route: 048
     Dates: start: 20021205
  4. WELLBUTRIN SR [Concomitant]
     Indication: DEPRESSION
     Dosage: 120 TO 190 MG TWICE DAILY
     Route: 048
  5. CELEXA [Concomitant]
     Dosage: 20 TO 40 MG DAILY
     Dates: start: 20021205
  6. DEPAKOTE [Concomitant]
     Dosage: 250 MG TO 1000 MG
  7. DOCUSATE NA [Concomitant]
     Indication: CONSTIPATION
     Route: 048
  8. ETODOLAC [Concomitant]
     Indication: PAIN
     Dosage: 300 MG EVERY 8 HOURS
     Route: 048
  9. FLAGYL [Concomitant]
     Dosage: 500 MG QID
     Route: 048
     Dates: start: 20070724
  10. FLUNISOLIDE [Concomitant]
     Indication: HYPERSENSITIVITY
     Dosage: 25 MCG 200 D NASAL INH SPRAY 1 PUFF IN EACH NOSTRIL EVERY DAY
  11. FOLIC ACID [Concomitant]
     Route: 048
  12. GABAPENTIN [Concomitant]
     Dosage: 100 MG TO 600 MG TID DAILY TABLET / CAPSULE
     Route: 048
  13. HYDROXYZINE [Concomitant]
     Indication: SLEEP DISORDER
     Dosage: 50 MG QHS
  14. LORATADINE [Concomitant]
     Dosage: 10 MG TO 13 MG DAILY
     Route: 048
  15. NAPROXEN [Concomitant]
     Dosage: 375 MG TO 500 MG BID
     Route: 048
  16. OMEPRAZOLE [Concomitant]
     Route: 048
  17. PROMETHAZINE [Concomitant]
     Indication: NAUSEA
     Dosage: 25 MG 6 HOURS PRN
     Route: 048
  18. SERTRALINE [Concomitant]
     Indication: DEPRESSION
     Dosage: 100 MG TAB TAKE ONE VERY MORNING
     Route: 048
  19. VENLAFAXINE HCL [Concomitant]
  20. ZANTAC [Concomitant]

REACTIONS (2)
  - DIABETES MELLITUS [None]
  - PANCREATITIS ACUTE [None]
